FAERS Safety Report 13344455 (Version 1)
Quarter: 2017Q1

REPORT INFORMATION
  Report Type: Other
  Country: DE (occurrence: DE)
  Receive Date: 20170317
  Receipt Date: 20170317
  Transmission Date: 20170428
  Serious: Yes (Other)
  Sender: FDA-Public Use
  Company Number: DE-ACTELION-A-CH2017-151045

PATIENT
  Age: 60 Year
  Sex: Female

DRUGS (6)
  1. PREDNISOLONE. [Concomitant]
     Active Substance: PREDNISOLONE
  2. CYCLOPHOSPHAMIDE. [Concomitant]
     Active Substance: CYCLOPHOSPHAMIDE
  3. OPSUMIT [Concomitant]
     Active Substance: MACITENTAN
     Dosage: 10 MG, UNK
  4. AZATHIOPRINE. [Concomitant]
     Active Substance: AZATHIOPRINE
  5. SILDENAFIL. [Concomitant]
     Active Substance: SILDENAFIL
     Dosage: 20 MG, TID
  6. BOSENTAN. [Suspect]
     Active Substance: BOSENTAN
     Indication: SCLERODERMA ASSOCIATED DIGITAL ULCER
     Route: 048

REACTIONS (16)
  - Paraesthesia [Recovering/Resolving]
  - Pulmonary arterial hypertension [Unknown]
  - Pulmonary fibrosis [Unknown]
  - Systemic scleroderma [Recovering/Resolving]
  - Raynaud^s phenomenon [Recovering/Resolving]
  - Hyperaesthesia [Recovering/Resolving]
  - Thermohyperaesthesia [Recovering/Resolving]
  - Oesophageal motility disorder [Recovering/Resolving]
  - Hypoaesthesia [Recovering/Resolving]
  - Dysarthria [Recovering/Resolving]
  - Sclerodactylia [Recovering/Resolving]
  - Telangiectasia [Recovering/Resolving]
  - Dysaesthesia [Recovering/Resolving]
  - Dysgeusia [Recovering/Resolving]
  - Condition aggravated [Recovering/Resolving]
  - Hyperkeratosis [Recovering/Resolving]
